FAERS Safety Report 15744755 (Version 1)
Quarter: 2018Q4

REPORT INFORMATION
  Report Type: Spontaneous
  Country: NL (occurrence: NL)
  Receive Date: 20181220
  Receipt Date: 20181220
  Transmission Date: 20190205
  Serious: Yes (Hospitalization)
  Sender: FDA-Public Use
  Company Number: NL-RARE DISEASE THERAPEUTICS, INC.-2060428

PATIENT
  Age: 47 Year
  Sex: Male

DRUGS (5)
  1. PURIXAN [Suspect]
     Active Substance: MERCAPTOPURINE
     Route: 065
     Dates: start: 20160905, end: 20180323
  2. PREDNISOLONE. [Suspect]
     Active Substance: PREDNISOLONE
     Route: 065
     Dates: start: 20160905, end: 20170727
  3. METHOTREXATE. [Suspect]
     Active Substance: METHOTREXATE
     Route: 048
     Dates: start: 20160905, end: 20180313
  4. CLOFARABINE. [Suspect]
     Active Substance: CLOFARABINE
     Route: 042
     Dates: start: 20160309, end: 20160513
  5. VINCRISTINE SULFATE. [Suspect]
     Active Substance: VINCRISTINE SULFATE
     Route: 065
     Dates: start: 20160912, end: 20170720

REACTIONS (2)
  - Lung infection [Recovered/Resolved]
  - Pneumonia [Recovered/Resolved]

NARRATIVE: CASE EVENT DATE: 20180323
